FAERS Safety Report 5893452-1 (Version None)
Quarter: 2008Q3

REPORT INFORMATION
  Report Type: 
  Country: None (occurrence: None)
  Receive Date: 20080922
  Receipt Date: 20080922
  Transmission Date: 20090109
  Serious: No
  Sender: FDA-Public Use
  Company Number: None

PATIENT
  Sex: Male
  Weight: 95.2554 kg

DRUGS (4)
  1. AVELOX [Suspect]
     Indication: PNEUMONIA
     Dosage: 400 MG DAILY ORAL
     Route: 048
     Dates: start: 20080910
  2. PREDNISONE TAB [Concomitant]
  3. NEXIUM [Concomitant]
  4. ALBUTEROL [Concomitant]

REACTIONS (1)
  - TENDONITIS [None]
